FAERS Safety Report 7061353-1 (Version None)
Quarter: 2010Q4

REPORT INFORMATION
  Report Type: 
  Country: None (occurrence: None)
  Receive Date: 20101026
  Receipt Date: 20101013
  Transmission Date: 20110411
  Serious: Yes (Other)
  Sender: FDA-Public Use
  Company Number: PHHY2010PH53500

PATIENT
  Sex: Female

DRUGS (5)
  1. ACLASTA [Suspect]
     Indication: OSTEOPOROSIS
     Dosage: UNK
     Dates: start: 20080101
  2. ACLASTA [Suspect]
     Dosage: 5MG/100ML
     Dates: start: 20090917
  3. CALCIUM [Concomitant]
  4. TENORMIN [Concomitant]
     Dosage: 25 MG ONCE A DAY
  5. SIMVASTATIN [Concomitant]
     Dosage: 10 MG ONCE A DAY

REACTIONS (5)
  - DECREASED APPETITE [None]
  - DIARRHOEA [None]
  - MALABSORPTION [None]
  - NAUSEA [None]
  - WEIGHT DECREASED [None]
